FAERS Safety Report 22061740 (Version 3)
Quarter: 2023Q2

REPORT INFORMATION
  Report Type: Spontaneous
  Country: IT (occurrence: IT)
  Receive Date: 20230304
  Receipt Date: 20230615
  Transmission Date: 20230722
  Serious: Yes (Death, Hospitalization, Other)
  Sender: FDA-Public Use
  Company Number: IT-IBIGEN-2023.12815

PATIENT
  Age: 72 Year
  Sex: Female

DRUGS (12)
  1. FUROSEMIDE [Suspect]
     Active Substance: FUROSEMIDE
     Indication: Anuria
     Dosage: AFTER CONSULTATION WITH A NEPHROLOGIST, THERE WAS A FIRST ATTEMPT WITH HIGH-DOSE FUROSEMIDE AND A SE
     Route: 065
  2. PIPERACILLIN AND TAZOBACTAM [Suspect]
     Active Substance: PIPERACILLIN SODIUM\TAZOBACTAM SODIUM
     Indication: Product used for unknown indication
     Dosage: PIPERACILLIN/TAZOBACTAM + CEFTAROLIN
     Route: 065
  3. CEFTAROLINE [Suspect]
     Active Substance: CEFTAROLINE
     Indication: Product used for unknown indication
     Dosage: PIPERACILLIN/TAZOBACTAM + CEFTAROLIN
     Route: 065
  4. TIROFIBAN [Suspect]
     Active Substance: TIROFIBAN
     Indication: Acute myocardial infarction
     Dosage: 0.04 ?G/KG/MIN LOADING DOSE, FOLLOWED BY 0.01 ?G/KG/MIN INFUSION
     Route: 065
  5. TIROFIBAN [Suspect]
     Active Substance: TIROFIBAN
     Indication: Myocardial infarction
     Dosage: 180 MILLIGRAM
     Route: 065
  6. TIROFIBAN [Suspect]
     Active Substance: TIROFIBAN
     Indication: Product used for unknown indication
     Dosage: UNK
     Route: 065
  7. HEPARIN SODIUM [Concomitant]
     Active Substance: HEPARIN SODIUM
     Indication: Antiplatelet therapy
     Dosage: 12 INTERNATIONAL UNIT/KILOGRAM, EVERY HOUR
     Route: 065
  8. ASPIRIN DL-LYSINE [Concomitant]
     Active Substance: ASPIRIN DL-LYSINE
     Indication: Myocardial infarction
     Dosage: 250 MILLIGRAM
     Route: 042
  9. TICAGRELOR [Concomitant]
     Active Substance: TICAGRELOR
     Indication: Myocardial infarction
     Dosage: UNK
     Route: 065
  10. VALSARTAN [Concomitant]
     Active Substance: VALSARTAN
     Indication: Hypertension
     Dosage: UNK
     Route: 065
  11. PIPERACILLIN AND TAZOBACTAM [Concomitant]
     Active Substance: PIPERACILLIN SODIUM\TAZOBACTAM SODIUM
     Indication: Antibiotic prophylaxis
     Dosage: UNK
     Route: 065
  12. CEFTAROLINE FOSAMIL [Concomitant]
     Active Substance: CEFTAROLINE FOSAMIL
     Indication: Antibiotic prophylaxis
     Dosage: UNK
     Route: 065

REACTIONS (20)
  - Anuria [Fatal]
  - Ischaemia [Fatal]
  - Death [Fatal]
  - Hypoperfusion [Fatal]
  - Thrombocytopenic purpura [Fatal]
  - Haemodynamic instability [Fatal]
  - Thrombosis [Fatal]
  - Procalcitonin increased [Fatal]
  - White blood cell count increased [Fatal]
  - Respiratory failure [Fatal]
  - Blood creatinine increased [Fatal]
  - Confusional state [Fatal]
  - Chest pain [Fatal]
  - Anaemia [Fatal]
  - C-reactive protein increased [Fatal]
  - Thrombotic microangiopathy [Recovering/Resolving]
  - Renal ischaemia [Recovering/Resolving]
  - Haemolysis [Recovering/Resolving]
  - Cardiac ventricular thrombosis [Recovering/Resolving]
  - Drug ineffective [Unknown]
